FAERS Safety Report 19685394 (Version 2)
Quarter: 2021Q3

REPORT INFORMATION
  Report Type: Spontaneous
  Country: US (occurrence: US)
  Receive Date: 20210811
  Receipt Date: 20210921
  Transmission Date: 20211014
  Serious: No
  Sender: FDA-Public Use
  Company Number: US-PFIZER INC-202100952471

PATIENT
  Age: 42 Year
  Sex: Female
  Weight: 99.79 kg

DRUGS (1)
  1. DEPO?PROVERA [Suspect]
     Active Substance: MEDROXYPROGESTERONE ACETATE
     Indication: CONTRACEPTION
     Dosage: 104 MG EVERY 3 MONTHS
     Route: 058

REACTIONS (3)
  - Product administration error [Unknown]
  - Drug dose omission by device [Unknown]
  - Syringe issue [Unknown]
